FAERS Safety Report 22846129 (Version 6)
Quarter: 2023Q4

REPORT INFORMATION
  Report Type: Spontaneous
  Country: JP (occurrence: JP)
  Receive Date: 20230821
  Receipt Date: 20231208
  Transmission Date: 20240110
  Serious: Yes (Hospitalization, Other)
  Sender: FDA-Public Use
  Company Number: JP-ONO-2023JP021033

PATIENT
  Age: 61 Year
  Sex: Male
  Weight: 41.5 kg

DRUGS (10)
  1. OPDIVO [Suspect]
     Active Substance: NIVOLUMAB
     Indication: Oesophageal carcinoma
     Route: 041
     Dates: start: 20230522, end: 20230619
  2. CISPLATIN [Suspect]
     Active Substance: CISPLATIN
     Indication: Oesophageal carcinoma
     Dosage: THE CUMULATIVE DOSE OF CISPLATIN, ABOUT 370 MG/M2)
     Route: 041
     Dates: start: 20230522, end: 20230619
  3. FLUOROURACIL [Concomitant]
     Active Substance: FLUOROURACIL
     Indication: Oesophageal carcinoma
     Dosage: UNK
     Dates: start: 20230522, end: 20230623
  4. FOSNETUPITANT CHLORIDE HYDROCHLORIDE [Concomitant]
     Active Substance: FOSNETUPITANT CHLORIDE HYDROCHLORIDE
     Indication: Prophylaxis
     Dosage: 235 MG, EVERYDAY
     Route: 041
     Dates: start: 2023, end: 20230619
  5. PALONOSETRON [Concomitant]
     Active Substance: PALONOSETRON
     Indication: Prophylaxis
     Dosage: 0.75 MG, EVERYDAY
     Route: 041
     Dates: start: 2023, end: 20230619
  6. DEXAMETHASONE SODIUM PHOSPHATE [Concomitant]
     Active Substance: DEXAMETHASONE PHOSPHATE\DEXAMETHASONE SODIUM PHOSPHATE
     Indication: Prophylaxis
     Dosage: 1.5 V, EVERYDAY
     Route: 041
     Dates: start: 2023, end: 20230619
  7. POTASSIUM ASPARTATE [Concomitant]
     Active Substance: POTASSIUM ASPARTATE
     Indication: Prophylaxis
     Dosage: 10 MEQ, Q12H
     Route: 041
     Dates: start: 2023, end: 20230619
  8. DECADRON [Concomitant]
     Active Substance: DEXAMETHASONE
     Indication: Prophylaxis
     Dosage: 8 MG, EVERYDAY
     Route: 048
     Dates: start: 2023, end: 20230619
  9. ESOMEPRAZOLE [Concomitant]
     Active Substance: ESOMEPRAZOLE
     Indication: Product used for unknown indication
     Route: 048
  10. ENORAS [Concomitant]
     Indication: Product used for unknown indication

REACTIONS (8)
  - Nausea [Recovered/Resolved]
  - Dehydration [Recovered/Resolved]
  - Tubulointerstitial nephritis [Recovering/Resolving]
  - Pancytopenia [Recovered/Resolved]
  - Immune-mediated renal disorder [Recovered/Resolved]
  - Blood creatinine increased [Recovering/Resolving]
  - Stomatitis [Unknown]
  - Lip haemorrhage [Unknown]

NARRATIVE: CASE EVENT DATE: 20230620
